FAERS Safety Report 4562563-5 (Version None)
Quarter: 2005Q1

REPORT INFORMATION
  Report Type: 
  Country: None (occurrence: None)
  Receive Date: 20050124
  Receipt Date: 20050113
  Transmission Date: 20050727
  Serious: Yes (Hospitalization)
  Sender: FDA-Public Use
  Company Number: 003830

PATIENT
  Age: 53 Year
  Sex: Female
  Weight: 57.1 kg

DRUGS (2)
  1. PLAN B [Suspect]
     Dosage: ORAL
     Route: 048
     Dates: start: 20040501, end: 20040501
  2. DEPAKOTE [Concomitant]

REACTIONS (9)
  - BACK PAIN [None]
  - BIPOLAR I DISORDER [None]
  - DYSMENORRHOEA [None]
  - FATIGUE [None]
  - HEPATIC LESION [None]
  - MENORRHAGIA [None]
  - RETINAL OEDEMA [None]
  - SMEAR CERVIX ABNORMAL [None]
  - SPLENIC LESION [None]
